FAERS Safety Report 9220881 (Version 2)
Quarter: 2013Q2

REPORT INFORMATION
  Report Type: Report from Study
  Country: CA (occurrence: CA)
  Receive Date: 20130409
  Receipt Date: 20130603
  Transmission Date: 20140414
  Serious: Yes (Hospitalization)
  Sender: FDA-Public Use
  Company Number: CA-ABBOTT-13P-028-1070674-00

PATIENT
  Age: 80 Year
  Sex: Female
  Weight: 63.56 kg

DRUGS (14)
  1. HUMIRA [Suspect]
     Indication: RHEUMATOID ARTHRITIS
     Route: 058
     Dates: start: 20071026
  2. ATORVASTATIN [Concomitant]
     Indication: PRODUCT USED FOR UNKNOWN INDICATION
     Route: 048
  3. PRADAXA [Concomitant]
     Indication: ANTICOAGULANT THERAPY
     Route: 048
  4. DOCUSATE SODIUM [Concomitant]
     Indication: CONSTIPATION PROPHYLAXIS
     Route: 048
  5. ARICEPT [Concomitant]
     Indication: MEMORY IMPAIRMENT
     Route: 048
  6. IRON [Concomitant]
     Indication: BLOOD IRON DECREASED
     Route: 048
  7. LOSARTAN [Concomitant]
     Indication: BLOOD PRESSURE
     Route: 048
  8. NOTRIPTYLINE [Concomitant]
     Indication: PAIN
     Route: 048
  9. PANTOPRAZOLE [Concomitant]
     Indication: GASTROOESOPHAGEAL REFLUX DISEASE
     Route: 048
  10. SENOKOT [Concomitant]
     Indication: LAXATIVE SUPPORTIVE CARE
     Route: 048
  11. VITAMIN D NOS [Concomitant]
     Indication: VITAMIN SUPPLEMENTATION
     Route: 048
  12. VITAMIN B-12 [Concomitant]
     Indication: VITAMIN SUPPLEMENTATION
     Route: 048
  13. FOLIC ACID [Concomitant]
     Indication: VITAMIN SUPPLEMENTATION
     Route: 048
  14. CALCIUM CARBONATE [Concomitant]
     Indication: MINERAL SUPPLEMENTATION
     Route: 048

REACTIONS (2)
  - Pelvic fracture [Not Recovered/Not Resolved]
  - Fall [Recovered/Resolved]
